FAERS Safety Report 4641529-0 (Version None)
Quarter: 2005Q2

REPORT INFORMATION
  Report Type: 
  Country: None (occurrence: None)
  Receive Date: 20050421
  Receipt Date: 20050311
  Transmission Date: 20051028
  Serious: Yes (Hospitalization)
  Sender: FDA-Public Use
  Company Number: JP-ROCHE-398530

PATIENT
  Age: 74 Year
  Sex: Female

DRUGS (1)
  1. RIVOTRIL [Suspect]
     Route: 048
     Dates: start: 20041202, end: 20050302

REACTIONS (1)
  - PANCYTOPENIA [None]
